FAERS Safety Report 5739531-0 (Version None)
Quarter: 2008Q2

REPORT INFORMATION
  Report Type: 
  Country: None (occurrence: None)
  Receive Date: 20080515
  Receipt Date: 20080509
  Transmission Date: 20081010
  Serious: No
  Sender: FDA-Public Use
  Company Number: US-BOEHRINGER INGELHEIM GMBH, GERMANY-2008-BP-07405BP

PATIENT
  Age: 62 Year
  Sex: Male

DRUGS (4)
  1. CATAPRES-TTS-1 [Suspect]
     Indication: HYPERTENSION
     Route: 061
     Dates: start: 20080401
  2. GABAPENTIN [Concomitant]
  3. NORTRIPTYLINE HCL [Concomitant]
  4. VIAGRA [Concomitant]

REACTIONS (2)
  - HYPERTENSION [None]
  - MUSCULAR WEAKNESS [None]
